FAERS Safety Report 8818434 (Version 1)
Quarter: 2012Q4

REPORT INFORMATION
  Report Type: 
  Country: DE (occurrence: DE)
  Receive Date: 20121001
  Receipt Date: 20121001
  Transmission Date: 20130627
  Serious: Yes (Hospitalization)
  Sender: FDA-Public Use
  Company Number: DE-ELI_LILLY_AND_COMPANY-DE201209005998

PATIENT
  Sex: Female

DRUGS (5)
  1. FORSTEO [Suspect]
     Indication: OSTEOPOROSIS
     Dosage: UNK, qd
     Route: 058
     Dates: start: 20120627
  2. PROVAS                             /00641902/ [Concomitant]
  3. ISCOVER [Concomitant]
  4. METOPROLOL [Concomitant]
  5. MAGNESIUM [Concomitant]

REACTIONS (3)
  - Arrhythmia [Not Recovered/Not Resolved]
  - Heart rate increased [Not Recovered/Not Resolved]
  - Muscle twitching [Recovering/Resolving]
